FAERS Safety Report 9001317 (Version 1)
Quarter: 2013Q1

REPORT INFORMATION
  Report Type: Spontaneous
  Country: US (occurrence: US)
  Receive Date: 20130107
  Receipt Date: 20130107
  Transmission Date: 20140127
  Serious: Yes (Other)
  Sender: FDA-Public Use
  Company Number: CHPA2012US026006

PATIENT
  Age: 45 Year
  Sex: Female

DRUGS (8)
  1. EXCEDRIN MIGRAINE [Suspect]
     Indication: HEADACHE
     Dosage: 2 DF, TID
     Route: 048
  2. MAALOX UNKNOWN [Suspect]
     Indication: ULCER
     Dosage: A BOTTLE A DAY, UNK
     Route: 048
  3. IBUPROFEN [Suspect]
     Indication: HEADACHE
     Dosage: 800 MG, TID
     Route: 048
  4. CODEINE [Concomitant]
     Indication: PAIN
     Dosage: UNK, BID
  5. DRUG THERAPY NOS [Concomitant]
     Indication: PAIN
     Dosage: UNK, UNK
  6. PRILOSEC [Concomitant]
     Indication: ULCER
     Dosage: 1 PILL A DAY
     Route: 048
  7. ADVIL//IBUPROFEN [Concomitant]
     Indication: PAIN
     Dosage: UNK, UNK
     Route: 048
     Dates: start: 20121225, end: 20121225
  8. PEPTO-BISMOL [Concomitant]
     Indication: ULCER
     Dosage: A BOTTLE A DAY
     Route: 048

REACTIONS (2)
  - Coeliac disease [Not Recovered/Not Resolved]
  - Malaise [Not Recovered/Not Resolved]
